FAERS Safety Report 5385750-5 (Version None)
Quarter: 2007Q3

REPORT INFORMATION
  Report Type: 
  Country: None (occurrence: None)
  Receive Date: 20070712
  Receipt Date: 20070706
  Transmission Date: 20080115
  Serious: No
  Sender: FDA-Public Use
  Company Number: AUWYE868104MAR07

PATIENT
  Sex: Male
  Weight: 104 kg

DRUGS (13)
  1. TIGECYCLINE [Suspect]
     Indication: PSEUDOMONAS INFECTION
     Route: 042
     Dates: start: 20070123, end: 20070123
  2. TIGECYCLINE [Suspect]
     Indication: SEPTIC SHOCK
  3. LINEZOLID [Concomitant]
     Dosage: 1200 MG DAILY
     Route: 042
     Dates: start: 20070123, end: 20070123
  4. HEPARIN [Concomitant]
     Dosage: 15000 U DAILY
     Route: 042
     Dates: start: 20070123, end: 20070123
  5. PANTOPRAZOLE SODIUM [Concomitant]
     Dosage: 40 MG DAILY
     Route: 042
     Dates: start: 20070114, end: 20070123
  6. NOREPINEPHRINE [Concomitant]
  7. CIPROFLOXACIN [Concomitant]
     Route: 042
     Dates: start: 20070123, end: 20070123
  8. ACYCLOVIR [Concomitant]
     Dosage: 2400 MG DAILY
     Route: 042
     Dates: start: 20070123, end: 20070123
  9. XIGRIS [Concomitant]
     Dosage: 20 UG DAILY
     Route: 042
     Dates: start: 20070123, end: 20070123
  10. MIDAZOLAM HCL [Concomitant]
     Dosage: 5 ML/H
     Route: 042
     Dates: start: 20070122, end: 20070123
  11. PROPOFOL [Concomitant]
     Dosage: 500 ML/H
     Route: 042
     Dates: start: 20070123, end: 20070123
  12. LENOGRASTIM [Concomitant]
     Dosage: 263 UG DAILY
     Route: 058
     Dates: start: 20070120, end: 20070123
  13. AMBISOME [Concomitant]
     Dosage: 300 MG DAILY
     Route: 042
     Dates: start: 20070123, end: 20070123

REACTIONS (2)
  - RASH ERYTHEMATOUS [None]
  - RASH MACULAR [None]
